FAERS Safety Report 12724056 (Version 1)
Quarter: 2016Q3

REPORT INFORMATION
  Report Type: Other
  Country: US (occurrence: US)
  Receive Date: 20160908
  Receipt Date: 20160908
  Transmission Date: 20161109
  Serious: No
  Sender: FDA-Public Use
  Company Number: US-COL_23043_2016

PATIENT
  Sex: Male

DRUGS (1)
  1. COLGATE TOTAL ADVANCE WHITENING [Suspect]
     Active Substance: SODIUM FLUORIDE\TRICLOSAN
     Indication: PRODUCT USED FOR UNKNOWN INDICATION
     Dosage: NI/NI/
     Route: 048

REACTIONS (8)
  - Noninfective gingivitis [Unknown]
  - Lip exfoliation [Unknown]
  - Dry mouth [Unknown]
  - Tooth disorder [Unknown]
  - Oral mucosal exfoliation [Unknown]
  - Pyrexia [Unknown]
  - Toothache [Unknown]
  - Oral discomfort [Unknown]
